FAERS Safety Report 11143115 (Version 2)
Quarter: 2015Q2

REPORT INFORMATION
  Report Type: Spontaneous
  Country: JP (occurrence: JP)
  Receive Date: 20150526
  Receipt Date: 20150612
  Transmission Date: 20150821
  Serious: Yes (Other)
  Sender: FDA-Public Use
  Company Number: JP-ROCHE-1581304

PATIENT
  Age: 66 Year
  Sex: Female

DRUGS (6)
  1. LUCENTIS [Suspect]
     Active Substance: RANIBIZUMAB
     Indication: PATHOLOGIC MYOPIA
     Dosage: IN LEFT EYE
     Route: 031
     Dates: start: 20140425, end: 20150322
  2. LEVOBUNOLOL HYDROCHLORIDE. [Concomitant]
     Active Substance: LEVOBUNOLOL HYDROCHLORIDE
     Indication: OCULAR HYPERTENSION
  3. EPADEL [Concomitant]
     Active Substance: ICOSAPENT
     Dosage: 3 CAPSULES PER DAY
     Route: 065
  4. LUCENTIS [Suspect]
     Active Substance: RANIBIZUMAB
     Dosage: IN LEFT EYE
     Route: 050
     Dates: start: 20140926
  5. RESCULA [Concomitant]
     Active Substance: UNOPROSTONE ISOPROPYL
     Indication: OCULAR HYPERTENSION
  6. LUCENTIS [Suspect]
     Active Substance: RANIBIZUMAB
     Indication: CHOROIDAL NEOVASCULARISATION
     Dosage: IN LEFT EYE
     Route: 050
     Dates: start: 20140822

REACTIONS (3)
  - Choroidal haemorrhage [Recovering/Resolving]
  - Headache [Unknown]
  - Visual acuity reduced [Unknown]

NARRATIVE: CASE EVENT DATE: 20140927
